FAERS Safety Report 21136475 (Version 1)
Quarter: 2022Q3

REPORT INFORMATION
  Report Type: Spontaneous
  Country: FI (occurrence: FI)
  Receive Date: 20220727
  Receipt Date: 20220727
  Transmission Date: 20221027
  Serious: Yes (Disabling)
  Sender: FDA-Public Use
  Company Number: None

PATIENT
  Age: 43 Year
  Sex: Female

DRUGS (1)
  1. XEOMIN [Suspect]
     Active Substance: INCOBOTULINUMTOXINA
     Indication: Facial pain
     Dates: start: 20191114, end: 20191114

REACTIONS (12)
  - Asthenia [Recovered/Resolved with Sequelae]
  - Impaired work ability [Recovered/Resolved with Sequelae]
  - Joint ankylosis [Recovered/Resolved with Sequelae]
  - Fibrosis [Recovered/Resolved with Sequelae]
  - Trismus [Recovered/Resolved with Sequelae]
  - Fatigue [Recovered/Resolved with Sequelae]
  - Dizziness [Recovered/Resolved with Sequelae]
  - Temporomandibular joint syndrome [Recovered/Resolved with Sequelae]
  - Facial asymmetry [Recovered/Resolved with Sequelae]
  - Paradoxical masseter muscle bulging [Recovered/Resolved with Sequelae]
  - Facial pain [Recovered/Resolved with Sequelae]
  - Condition aggravated [Recovered/Resolved with Sequelae]

NARRATIVE: CASE EVENT DATE: 20191114
